FAERS Safety Report 5464732-9 (Version None)
Quarter: 2007Q3

REPORT INFORMATION
  Report Type: 
  Country: None (occurrence: None)
  Receive Date: 20070921
  Receipt Date: 20070913
  Transmission Date: 20080115
  Serious: Yes (Other)
  Sender: FDA-Public Use
  Company Number: IE-PFIZER INC-2007046427

PATIENT
  Sex: Female

DRUGS (5)
  1. LIPITOR [Suspect]
     Route: 048
     Dates: start: 20060601, end: 20070101
  2. MEGACE [Concomitant]
     Route: 048
  3. GLUCOSAMINE SULFATE [Concomitant]
     Route: 048
  4. ASPIRIN [Concomitant]
     Route: 048
  5. LUSTRAL [Concomitant]
     Route: 048

REACTIONS (6)
  - ARTHRALGIA [None]
  - FALL [None]
  - INSOMNIA [None]
  - LIVER DISORDER [None]
  - MALAISE [None]
  - PAIN IN EXTREMITY [None]
